FAERS Safety Report 6078126-9 (Version None)
Quarter: 2009Q1

REPORT INFORMATION
  Report Type: 
  Country: None (occurrence: None)
  Receive Date: 20090213
  Receipt Date: 20090211
  Transmission Date: 20090719
  Serious: Yes (Life-Threatening, Hospitalization)
  Sender: FDA-Public Use
  Company Number: US-B.I. PHARMACEUTICALS,INC./RIDGEFIELD-2008-BP-18281BP

PATIENT
  Age: 72 Year
  Sex: Female
  Weight: 119 kg

DRUGS (10)
  1. MICARDIS HCT [Suspect]
     Indication: HYPERTENSION
     Dates: start: 20060126, end: 20081202
  2. MICARDIS [Suspect]
     Indication: HYPERTENSION
     Dosage: 40MG
     Dates: start: 20040330
  3. AUGMENTIN '125' [Suspect]
     Indication: SINUSITIS
     Dates: start: 20081125, end: 20081202
  4. GLUCOSAMINE CHONDROITIN [Concomitant]
  5. CALCIUM [Concomitant]
     Dosage: 600MG
  6. CENTRUM SILVER [Concomitant]
  7. CARDIZEM LA [Concomitant]
     Dosage: 240MG
     Dates: start: 20050929
  8. CETIRIZINE [Concomitant]
     Dosage: 10MG
     Dates: start: 20080619
  9. LOVAZA [Concomitant]
     Dosage: 1000MG
     Dates: start: 20041214
  10. ASPIRIN [Concomitant]
     Dosage: 325MG
     Dates: start: 20010827

REACTIONS (3)
  - ANGIOEDEMA [None]
  - OEDEMA PERIPHERAL [None]
  - URTICARIA [None]
